FAERS Safety Report 10373690 (Version 1)
Quarter: 2014Q1

REPORT INFORMATION
  Report Type: Spontaneous
  Country: US (occurrence: None)
  Receive Date: 20140306
  Receipt Date: 20140306
  Transmission Date: 20141002
  Serious: Yes (Other)
  Sender: FDA-Public Use
  Company Number: 163-21880-13071173

PATIENT
  Age: 61 Year
  Sex: Male
  Weight: 81.6 kg

DRUGS (14)
  1. REVLIMID (LENALIDOMIDE) (25 MILLIGRAM, CAPSULES) [Suspect]
     Indication: PLASMA CELL MYELOMA
     Dosage: 25 MG, 14 IN 21 D, PO
     Route: 048
     Dates: start: 201304
  2. NAPROSYN (NAPROXEN) (TABLETS) [Concomitant]
  3. ANDROGEL (TESTOSTERONE) (GEL) [Concomitant]
  4. PRAVASTATIN SODIUM (TABLETS) [Concomitant]
  5. VITAMIN D3 (COLECALCIFEROL) (TABLETS) [Concomitant]
  6. LIDOCAINE (CREAM) [Concomitant]
  7. SPECTRAVITE (VITAMINS) (TABLETS) [Concomitant]
  8. MIRALAX (MACROGOL) (POWDER) [Concomitant]
  9. VALACYCLOVIR HCL (VALACICLOVIR HYDROCHLORIDE) (TABLETS) [Concomitant]
  10. DEXAMETHASONE (TABLETS) [Concomitant]
  11. ZOMETA (ZOLEDRONIC ACID) (INJECTION) [Concomitant]
  12. LORAZEPAM (TABLETS) [Concomitant]
  13. ASPIRIN (ACETYLSALICYLIC ACID) (TABLETS) [Concomitant]
  14. VELCADE (BORTEZOMIB) [Concomitant]

REACTIONS (4)
  - Rash papular [None]
  - Fatigue [None]
  - Neuropathy peripheral [None]
  - Drug dose omission [None]
